FAERS Safety Report 7960208-5 (Version None)
Quarter: 2011Q4

REPORT INFORMATION
  Report Type: 
  Country: None (occurrence: None)
  Receive Date: 20111206
  Receipt Date: 20111201
  Transmission Date: 20120403
  Serious: Yes (Death)
  Sender: FDA-Public Use
  Company Number: PHHY2011CN105221

PATIENT

DRUGS (10)
  1. CYTARABINE [Concomitant]
     Indication: STEM CELL TRANSPLANT
     Dosage: 4 G/M2 PER DAY
     Route: 042
  2. ACYCLOVIR [Concomitant]
     Dosage: UNK UKN, UNK
  3. ANTI-THYMOCYTE GLOBULIN NOS [Concomitant]
     Dosage: 2.5 MG/KG PER DAY, FOR 4 CONSECUTIVE DAYS FROM DAYS 2 TO 5
     Route: 042
  4. METHOTREXATE [Concomitant]
     Indication: PROPHYLAXIS AGAINST GRAFT VERSUS HOST DISEASE
     Dosage: 15 MG/M2, UNK
  5. NITROSOUREAS [Concomitant]
     Dosage: 250 MG/M2, ONCE ON DAY 3
     Route: 048
  6. CYCLOPHOSPHAMIDE [Concomitant]
     Dosage: UNK UKN, UNK
     Route: 042
  7. BUSULFAN [Concomitant]
     Indication: STEM CELL TRANSPLANT
     Dosage: 3.2 MG/KG PER DAY
     Route: 042
  8. FLUCONAZOLE [Concomitant]
     Dosage: FROM DAY 5 TO DAY 30
  9. CYCLOSPORINE [Suspect]
     Indication: PROPHYLAXIS AGAINST GRAFT VERSUS HOST DISEASE
     Dosage: 1.25 MG/KG
  10. TRIMETHOPRIM [Concomitant]
     Indication: ANTIFUNGAL PROPHYLAXIS
     Dosage: UNK UKN, UNK

REACTIONS (1)
  - GRAFT VERSUS HOST DISEASE [None]
